FAERS Safety Report 9774431 (Version 1)
Quarter: 2013Q4

REPORT INFORMATION
  Report Type: Spontaneous
  Country: US (occurrence: US)
  Receive Date: 20131220
  Receipt Date: 20131220
  Transmission Date: 20140711
  Serious: Yes (Other)
  Sender: FDA-Public Use
  Company Number: US-UCBSA-105987

PATIENT
  Age: 63 Year
  Sex: Male

DRUGS (3)
  1. LEVETIRACETAM [Suspect]
     Dosage: UNKNOWN DOSE
  2. LAMOTRIGINE [Concomitant]
     Dosage: UNKNOWN DOSE
  3. TOPIRAMATE [Concomitant]
     Dosage: UNKNOWN DOSE

REACTIONS (1)
  - Convulsion [Recovering/Resolving]
